FAERS Safety Report 25077987 (Version 2)
Quarter: 2025Q2

REPORT INFORMATION
  Report Type: Spontaneous
  Country: GB (occurrence: GB)
  Receive Date: 20250314
  Receipt Date: 20250415
  Transmission Date: 20250717
  Serious: Yes (Other)
  Sender: TEVA
  Company Number: None

PATIENT
  Age: 19 Year
  Sex: Male
  Weight: 71 kg

DRUGS (2)
  1. PROPRANOLOL [Suspect]
     Active Substance: PROPRANOLOL HYDROCHLORIDE
     Indication: Anxiety
     Route: 065
     Dates: start: 20250226
  2. ZOPICLONE [Concomitant]
     Active Substance: ZOPICLONE
     Indication: Insomnia
     Dates: start: 20250226, end: 20250301

REACTIONS (9)
  - Depression [Not Recovered/Not Resolved]
  - Abdominal discomfort [Not Recovered/Not Resolved]
  - Asthenopia [Recovering/Resolving]
  - Dry eye [Recovering/Resolving]
  - Aggression [Recovering/Resolving]
  - Muscular weakness [Not Recovered/Not Resolved]
  - Agitation [Unknown]
  - Medication error [Unknown]
  - Hunger [Unknown]

NARRATIVE: CASE EVENT DATE: 20250226
